FAERS Safety Report 23842475 (Version 1)
Quarter: 2024Q2

REPORT INFORMATION
  Report Type: Spontaneous
  Country: US (occurrence: None)
  Receive Date: 20240509
  Receipt Date: 20240509
  Transmission Date: 20240716
  Serious: Yes (Hospitalization)
  Sender: FDA-Public Use
  Company Number: None

PATIENT
  Age: 73 Year
  Sex: Male
  Weight: 80 kg

DRUGS (1)
  1. SEMAGLUTIDE [Suspect]
     Active Substance: SEMAGLUTIDE
     Indication: Drug therapy
     Dosage: FREQUENCY : WEEKLY;?
     Route: 058
     Dates: start: 20220429, end: 20220722

REACTIONS (2)
  - Cholelithiasis [None]
  - Pancreatitis [None]

NARRATIVE: CASE EVENT DATE: 20220630
